FAERS Safety Report 5700288-0 (Version None)
Quarter: 2008Q2

REPORT INFORMATION
  Report Type: 
  Country: None (occurrence: None)
  Receive Date: 20080410
  Receipt Date: 20080404
  Transmission Date: 20081010
  Serious: Yes (Death, Hospitalization)
  Sender: FDA-Public Use
  Company Number: A0707920A

PATIENT
  Age: 36 Year
  Sex: Female
  Weight: 87 kg

DRUGS (7)
  1. PAZOPANIB [Suspect]
     Dosage: 800MG PER DAY
     Route: 048
     Dates: start: 20080124
  2. LAPATINIB [Suspect]
     Dosage: 1500MG PER DAY
     Route: 048
     Dates: start: 20080124
  3. LASIX [Concomitant]
     Indication: FLUID OVERLOAD
     Route: 042
     Dates: start: 20080205, end: 20080213
  4. PREDNISONE [Concomitant]
     Dates: start: 20080131, end: 20080203
  5. OXYCONTIN [Concomitant]
     Dosage: 20MG TWICE PER DAY
     Route: 048
     Dates: start: 20080131, end: 20080204
  6. DEXMEDETOMIDINE HYDROCHLORIDE [Concomitant]
     Dosage: 200MCG SINGLE DOSE
     Route: 042
     Dates: start: 20080211, end: 20080211
  7. CEFAZOLIN [Concomitant]
     Dosage: 1MG SINGLE DOSE
     Route: 042
     Dates: start: 20080204, end: 20080204

REACTIONS (9)
  - ABASIA [None]
  - CARDIAC ARREST [None]
  - DYSPNOEA [None]
  - EATING DISORDER [None]
  - FATIGUE [None]
  - NAUSEA [None]
  - PLEURAL EFFUSION [None]
  - RESPIRATORY DISTRESS [None]
  - VOMITING [None]
